FAERS Safety Report 17866946 (Version 1)
Quarter: 2020Q2

REPORT INFORMATION
  Report Type: Report from Study
  Country: US (occurrence: US)
  Receive Date: 20200605
  Receipt Date: 20200605
  Transmission Date: 20200714
  Serious: No
  Sender: FDA-Public Use
  Company Number: NVSC2020US157163

PATIENT
  Sex: Female
  Weight: 171 kg

DRUGS (2)
  1. XIIDRA [Suspect]
     Active Substance: LIFITEGRAST
     Indication: PRODUCT USED FOR UNKNOWN INDICATION
     Dosage: 5 %, BID
     Route: 047
     Dates: start: 20181214
  2. XIIDRA [Suspect]
     Active Substance: LIFITEGRAST
     Dosage: UNK (SOMETIMES FROM 2 DROPS TO 1)
     Route: 047

REACTIONS (2)
  - Eye irritation [Unknown]
  - Incorrect dose administered [Unknown]
